FAERS Safety Report 16310480 (Version 2)
Quarter: 2021Q1

REPORT INFORMATION
  Report Type: Spontaneous
  Country: US (occurrence: US)
  Receive Date: 20190514
  Receipt Date: 20210302
  Transmission Date: 20210419
  Serious: Yes (Other)
  Sender: FDA-Public Use
  Company Number: US-ASTRAZENECA-2019SE67308

PATIENT
  Age: 32 Year
  Sex: Female
  Weight: 73.5 kg

DRUGS (109)
  1. PRILOSEC [Suspect]
     Active Substance: OMEPRAZOLE MAGNESIUM
     Indication: GASTROOESOPHAGEAL REFLUX DISEASE
     Route: 048
     Dates: start: 201703, end: 201807
  2. PROTONIX [Suspect]
     Active Substance: PANTOPRAZOLE SODIUM
     Indication: GASTROOESOPHAGEAL REFLUX DISEASE
     Route: 065
     Dates: start: 201703, end: 201807
  3. DICLOFENAC [Concomitant]
     Active Substance: DICLOFENAC
     Indication: PAIN
     Dates: start: 201411, end: 201507
  4. AZITHROMYCIN ANHYDROUS. [Concomitant]
     Active Substance: AZITHROMYCIN ANHYDROUS
     Indication: INFECTION
     Dates: start: 201303, end: 201303
  5. AZITHROMYCIN ANHYDROUS. [Concomitant]
     Active Substance: AZITHROMYCIN ANHYDROUS
     Indication: INFECTION
     Dates: start: 201412, end: 201501
  6. AZITHROMYCIN ANHYDROUS. [Concomitant]
     Active Substance: AZITHROMYCIN ANHYDROUS
     Indication: INFECTION
     Dates: start: 201508, end: 201511
  7. AZITHROMYCIN ANHYDROUS. [Concomitant]
     Active Substance: AZITHROMYCIN ANHYDROUS
     Indication: INFECTION
     Dates: start: 201801, end: 201801
  8. HYDROCHLOROTHIAZIDE. [Concomitant]
     Active Substance: HYDROCHLOROTHIAZIDE
     Indication: HYPERTENSION
     Dates: start: 201608, end: 201711
  9. NAPROXEN. [Concomitant]
     Active Substance: NAPROXEN
     Indication: PAIN
     Dates: start: 201611, end: 201612
  10. TMP/SMZ [Concomitant]
     Indication: INFECTION
     Dates: start: 201711, end: 201711
  11. TRAMADOL. [Concomitant]
     Active Substance: TRAMADOL
     Indication: PAIN
     Dates: start: 201706, end: 201712
  12. RANITIDINE. [Concomitant]
     Active Substance: RANITIDINE
     Dates: start: 201801, end: 201802
  13. POLYETHYLENE GLYCOL [Concomitant]
     Active Substance: POLYETHYLENE GLYCOLS
  14. TOUJEO [Concomitant]
     Active Substance: INSULIN GLARGINE
  15. NYSTATIN. [Concomitant]
     Active Substance: NYSTATIN
  16. PREVACID [Suspect]
     Active Substance: LANSOPRAZOLE
     Indication: GASTROOESOPHAGEAL REFLUX DISEASE
     Dosage: GENERIC
     Route: 065
     Dates: start: 2016
  17. CIPROFLOXACIN. [Concomitant]
     Active Substance: CIPROFLOXACIN
     Indication: INFECTION
     Dates: start: 201611, end: 201612
  18. LABETALOL [Concomitant]
     Active Substance: LABETALOL\LABETALOL HYDROCHLORIDE
  19. ONDANSETRON [Concomitant]
     Active Substance: ONDANSETRON
  20. SEROQUEL [Concomitant]
     Active Substance: QUETIAPINE FUMARATE
  21. LEVOFLOXACIN. [Concomitant]
     Active Substance: LEVOFLOXACIN
     Indication: INFECTION
     Dates: start: 201507, end: 201602
  22. CIPROFLOXACIN. [Concomitant]
     Active Substance: CIPROFLOXACIN
     Indication: INFECTION
     Dates: start: 201904, end: 201905
  23. QVAR [Concomitant]
     Active Substance: BECLOMETHASONE DIPROPIONATE
  24. MONTELUKAST [Concomitant]
     Active Substance: MONTELUKAST SODIUM
  25. LEVETIRACETAM. [Concomitant]
     Active Substance: LEVETIRACETAM
  26. ACETAZOLAMIDE. [Concomitant]
     Active Substance: ACETAZOLAMIDE
  27. CLARITHROMYCIN. [Concomitant]
     Active Substance: CLARITHROMYCIN
  28. GABAPENTIN. [Concomitant]
     Active Substance: GABAPENTIN
  29. EZETIMIBE. [Concomitant]
     Active Substance: EZETIMIBE
  30. PROMETHAZINE [Concomitant]
     Active Substance: PROMETHAZINE HYDROCHLORIDE
  31. NITROFURANTOIN. [Concomitant]
     Active Substance: NITROFURANTOIN
  32. NITROFURANTOIN. [Concomitant]
     Active Substance: NITROFURANTOIN
  33. METRONIDAZOLE. [Concomitant]
     Active Substance: METRONIDAZOLE
  34. PENICILLIN VK [Concomitant]
     Active Substance: PENICILLIN V POTASSIUM
  35. PREVACID [Suspect]
     Active Substance: LANSOPRAZOLE
     Indication: GASTROOESOPHAGEAL REFLUX DISEASE
     Route: 065
     Dates: start: 201703, end: 201807
  36. AZITHROMYCIN ANHYDROUS. [Concomitant]
     Active Substance: AZITHROMYCIN ANHYDROUS
     Indication: INFECTION
     Dates: start: 201310, end: 201311
  37. ATORVASTATIN [Concomitant]
     Active Substance: ATORVASTATIN
     Indication: BLOOD CHOLESTEROL INCREASED
     Dates: start: 201607, end: 201710
  38. AMOXICILLIN. [Concomitant]
     Active Substance: AMOXICILLIN
     Indication: INFECTION
     Dates: start: 201303, end: 201303
  39. AMOXICILLIN. [Concomitant]
     Active Substance: AMOXICILLIN
     Indication: INFECTION
     Dates: start: 201701, end: 201701
  40. AMOXICILLIN. [Concomitant]
     Active Substance: AMOXICILLIN
     Indication: INFECTION
     Dates: start: 201704, end: 201704
  41. TMP/SMZ [Concomitant]
     Indication: INFECTION
     Dates: start: 201705, end: 201706
  42. TRAMADOL. [Concomitant]
     Active Substance: TRAMADOL
     Indication: PAIN
     Dates: start: 201509, end: 201510
  43. DOXYCYCLINE. [Concomitant]
     Active Substance: DOXYCYCLINE
     Indication: INFECTION
     Dates: start: 201310, end: 201310
  44. TUMS [Concomitant]
     Active Substance: CALCIUM CARBONATE
     Dates: start: 2019
  45. ZETIA [Concomitant]
     Active Substance: EZETIMIBE
  46. CETIRIZINE [Concomitant]
     Active Substance: CETIRIZINE HYDROCHLORIDE
  47. TIZANIDINE. [Concomitant]
     Active Substance: TIZANIDINE
  48. PAROXETINE. [Concomitant]
     Active Substance: PAROXETINE
  49. AZITHROMYCIN ANHYDROUS. [Concomitant]
     Active Substance: AZITHROMYCIN ANHYDROUS
     Indication: INFECTION
     Dates: start: 201808, end: 201812
  50. AMOXICILLIN. [Concomitant]
     Active Substance: AMOXICILLIN
     Indication: INFECTION
     Dates: start: 201605, end: 201605
  51. NAPROXEN. [Concomitant]
     Active Substance: NAPROXEN
     Indication: PAIN
     Dates: start: 201706, end: 201712
  52. TRAMADOL. [Concomitant]
     Active Substance: TRAMADOL
     Indication: PAIN
     Dates: start: 201208, end: 201208
  53. ZANTAC [Concomitant]
     Active Substance: RANITIDINE HYDROCHLORIDE
     Dosage: 300
     Dates: start: 2018
  54. SERTRALINE [Concomitant]
     Active Substance: SERTRALINE HYDROCHLORIDE
  55. TRAZODONE [Concomitant]
     Active Substance: TRAZODONE HYDROCHLORIDE
  56. CLINDAMYCIN. [Concomitant]
     Active Substance: CLINDAMYCIN
  57. INDOMETHACIN. [Concomitant]
     Active Substance: INDOMETHACIN
  58. DESONIDE. [Concomitant]
     Active Substance: DESONIDE
  59. PROTONIX [Suspect]
     Active Substance: PANTOPRAZOLE SODIUM
     Indication: GASTROOESOPHAGEAL REFLUX DISEASE
     Route: 065
     Dates: end: 2018
  60. PROTONIX [Suspect]
     Active Substance: PANTOPRAZOLE SODIUM
     Indication: GASTROOESOPHAGEAL REFLUX DISEASE
     Dosage: GENERIC
     Route: 065
     Dates: end: 2019
  61. AZITHROMYCIN ANHYDROUS. [Concomitant]
     Active Substance: AZITHROMYCIN ANHYDROUS
     Indication: INFECTION
     Dates: start: 201601, end: 201601
  62. AZITHROMYCIN ANHYDROUS. [Concomitant]
     Active Substance: AZITHROMYCIN ANHYDROUS
     Indication: INFECTION
     Dates: start: 201612, end: 201612
  63. AZITHROMYCIN ANHYDROUS. [Concomitant]
     Active Substance: AZITHROMYCIN ANHYDROUS
     Indication: INFECTION
     Dates: start: 201702, end: 201704
  64. AZITHROMYCIN ANHYDROUS. [Concomitant]
     Active Substance: AZITHROMYCIN ANHYDROUS
     Indication: INFECTION
     Dates: start: 201711, end: 201711
  65. AMOXICILLIN. [Concomitant]
     Active Substance: AMOXICILLIN
     Indication: INFECTION
     Dates: start: 201310, end: 201310
  66. AMOXICILLIN. [Concomitant]
     Active Substance: AMOXICILLIN
     Indication: INFECTION
     Dates: start: 201403, end: 201404
  67. AMOXICILLIN. [Concomitant]
     Active Substance: AMOXICILLIN
     Indication: INFECTION
     Dates: start: 201610, end: 201611
  68. NAPROXEN. [Concomitant]
     Active Substance: NAPROXEN
     Indication: PAIN
     Dates: start: 201602, end: 201602
  69. NAPROXEN. [Concomitant]
     Active Substance: NAPROXEN
     Indication: PAIN
     Dates: start: 201805, end: 201805
  70. TRAMADOL. [Concomitant]
     Active Substance: TRAMADOL
     Indication: PAIN
     Dates: start: 201407, end: 201410
  71. DOXYCYCLINE. [Concomitant]
     Active Substance: DOXYCYCLINE
     Indication: INFECTION
     Dates: start: 201407, end: 201408
  72. DOXYCYCLINE. [Concomitant]
     Active Substance: DOXYCYCLINE
     Indication: INFECTION
     Dates: start: 201510, end: 201511
  73. SUMATRIPTAN. [Concomitant]
     Active Substance: SUMATRIPTAN
  74. SYMBICORT [Concomitant]
     Active Substance: BUDESONIDE\FORMOTEROL FUMARATE DIHYDRATE
  75. CYCLOBENZAPRINE. [Concomitant]
     Active Substance: CYCLOBENZAPRINE
  76. PROVENTIL [Concomitant]
     Active Substance: ALBUTEROL
  77. CLINDAMYCIN. [Concomitant]
     Active Substance: CLINDAMYCIN
  78. CHERATUSSIN [Concomitant]
     Active Substance: AMMONIUM CHLORIDE\DEXTROMETHORPHAN\SODIUM CITRATE
  79. PRILOSEC [Suspect]
     Active Substance: OMEPRAZOLE MAGNESIUM
     Indication: GASTROOESOPHAGEAL REFLUX DISEASE
     Dosage: 2 TABLETS 2X DAILY
     Route: 048
     Dates: end: 2018
  80. PREVACID [Suspect]
     Active Substance: LANSOPRAZOLE
     Indication: GASTROOESOPHAGEAL REFLUX DISEASE
     Route: 065
     Dates: end: 2018
  81. AZITHROMYCIN ANHYDROUS. [Concomitant]
     Active Substance: AZITHROMYCIN ANHYDROUS
     Indication: INFECTION
     Dates: start: 201904, end: 201908
  82. MELOXICAM. [Concomitant]
     Active Substance: MELOXICAM
     Indication: PAIN
     Dates: start: 201712, end: 201712
  83. TMP/SMZ [Concomitant]
     Indication: INFECTION
     Dates: start: 201503, end: 201503
  84. TMP/SMZ [Concomitant]
     Indication: INFECTION
     Dates: start: 201903, end: 201904
  85. TRAMADOL. [Concomitant]
     Active Substance: TRAMADOL
     Indication: PAIN
     Dates: start: 201604, end: 201605
  86. PROAIR HFA [Concomitant]
     Active Substance: ALBUTEROL SULFATE
  87. ADVAIR HFA [Concomitant]
     Active Substance: FLUTICASONE PROPIONATE\SALMETEROL XINAFOATE
  88. SUCRALFATE. [Concomitant]
     Active Substance: SUCRALFATE
  89. VITAMIN D2 [Concomitant]
     Active Substance: ERGOCALCIFEROL
  90. NAPROXEN. [Concomitant]
     Active Substance: NAPROXEN
  91. METRONIDAZOLE. [Concomitant]
     Active Substance: METRONIDAZOLE
  92. ONDANSETRON [Concomitant]
     Active Substance: ONDANSETRON
  93. PENICILLIN VK [Concomitant]
     Active Substance: PENICILLIN V POTASSIUM
  94. PAROXETINE. [Concomitant]
     Active Substance: PAROXETINE
  95. PRILOSEC [Suspect]
     Active Substance: OMEPRAZOLE MAGNESIUM
     Indication: GASTROOESOPHAGEAL REFLUX DISEASE
     Dosage: GENERIC
     Route: 065
  96. CIPROFLOXACIN. [Concomitant]
     Active Substance: CIPROFLOXACIN
     Indication: INFECTION
     Dates: start: 201410, end: 201410
  97. PEPCID [Concomitant]
     Active Substance: FAMOTIDINE
  98. BACLOFEN. [Concomitant]
     Active Substance: BACLOFEN
  99. VENTOLINE [Concomitant]
     Active Substance: ALBUTEROL
  100. NOVOLOG [Concomitant]
     Active Substance: INSULIN ASPART
  101. LATUDA [Concomitant]
     Active Substance: LURASIDONE HYDROCHLORIDE
  102. NAPROXEN. [Concomitant]
     Active Substance: NAPROXEN
  103. TIZANIDINE. [Concomitant]
     Active Substance: TIZANIDINE
  104. CYCLOBENZAPRINE. [Concomitant]
     Active Substance: CYCLOBENZAPRINE
  105. PROVENTIL [Concomitant]
     Active Substance: ALBUTEROL
  106. INDOMETHACIN. [Concomitant]
     Active Substance: INDOMETHACIN
  107. CHERATUSSIN [Concomitant]
     Active Substance: AMMONIUM CHLORIDE\DEXTROMETHORPHAN\SODIUM CITRATE
  108. DESONIDE. [Concomitant]
     Active Substance: DESONIDE
  109. SEROQUEL [Concomitant]
     Active Substance: QUETIAPINE FUMARATE

REACTIONS (2)
  - Gastrooesophageal reflux disease [Not Recovered/Not Resolved]
  - Tubulointerstitial nephritis [Not Recovered/Not Resolved]

NARRATIVE: CASE EVENT DATE: 2018
